FAERS Safety Report 7188008-7 (Version None)
Quarter: 2010Q4

REPORT INFORMATION
  Report Type: 
  Country: None (occurrence: None)
  Receive Date: 20101222
  Receipt Date: 20101214
  Transmission Date: 20110411
  Serious: Yes (Hospitalization, Other)
  Sender: FDA-Public Use
  Company Number: JP-PFIZER INC-2010158044

PATIENT
  Age: 63 Year
  Sex: Female
  Weight: 62 kg

DRUGS (15)
  1. AZULFIDINE [Suspect]
     Indication: RHEUMATOID ARTHRITIS
     Dosage: 1500 MG, UNK
     Route: 048
     Dates: start: 20091124, end: 20100209
  2. AZULFIDINE [Suspect]
     Dosage: 1750 MG, UNK
     Route: 048
     Dates: start: 20100210, end: 20100213
  3. AZULFIDINE [Suspect]
     Dosage: 2000 MG, UNK
     Route: 048
     Dates: start: 20100214, end: 20100218
  4. AZULFIDINE [Suspect]
     Dosage: 2250 MG, UNK
     Route: 048
     Dates: start: 20100219, end: 20100221
  5. AZULFIDINE [Suspect]
     Dosage: 2500 MG, UNK
     Route: 048
     Dates: start: 20100222, end: 20100224
  6. AZULFIDINE [Suspect]
     Dosage: 2750 MG, UNK
     Route: 048
     Dates: start: 20100225, end: 20100228
  7. AZULFIDINE [Suspect]
     Dosage: 3000 MG, UNK
     Route: 048
     Dates: start: 20100301, end: 20100422
  8. CELECOXIB [Suspect]
     Dosage: 200 MG, UNK
     Route: 048
     Dates: start: 20100225, end: 20100422
  9. PREDNISOLONE [Concomitant]
     Indication: RHEUMATOID ARTHRITIS
     Dosage: 5 MG, 1X/DAY
     Route: 048
     Dates: start: 20100225
  10. PREDNISOLONE [Concomitant]
     Dosage: 12 MG, 1X/DAY
     Route: 048
  11. OMEPRAL [Concomitant]
     Indication: GASTRIC ULCER
     Dosage: 20 MG, 1X/DAY
     Route: 048
  12. RIBOFLAVIN TAB [Concomitant]
     Indication: STOMATITIS
     Dosage: 20 MG, 1X/DAY
     Route: 048
     Dates: start: 20100225
  13. RIBOFLAVIN TAB [Concomitant]
     Dosage: 40 MG, 1X/DAY
     Route: 048
  14. NEUROTROPIN [Concomitant]
     Indication: PAIN
     Dosage: 4 IU, 2X/DAY
     Route: 048
     Dates: start: 20100225
  15. MAGNESIUM OXIDE [Concomitant]
     Dosage: 660 MG, UNK
     Route: 048
     Dates: start: 20100225

REACTIONS (4)
  - DRUG ERUPTION [None]
  - FACE OEDEMA [None]
  - GENERALISED ERYTHEMA [None]
  - RHEUMATOID ARTHRITIS [None]
